FAERS Safety Report 8234523-4 (Version None)
Quarter: 2012Q1

REPORT INFORMATION
  Report Type: 
  Country: None (occurrence: None)
  Receive Date: 20120321
  Receipt Date: 20120307
  Transmission Date: 20120608
  Serious: Yes (Hospitalization)
  Sender: FDA-Public Use
  Company Number: 2009AL001682

PATIENT
  Sex: Female
  Weight: 67.1324 kg

DRUGS (31)
  1. DIGOXIN [Suspect]
     Indication: CARDIAC DISORDER
     Dosage: 0.25 MG;QD;PO
     Route: 048
     Dates: start: 20000101, end: 20090203
  2. SIMVASTATIN [Concomitant]
  3. CYCLOBENZAPRINE HCL [Concomitant]
  4. ALPRAZOLAM [Concomitant]
  5. PRILOSEC [Concomitant]
  6. MECLIZINE [Concomitant]
  7. INSULIN [Concomitant]
  8. ATENOLOL [Concomitant]
  9. OMEPRAZOLE [Concomitant]
  10. SERTRALINE HYDROCHLORIDE [Concomitant]
  11. VYTORIN [Concomitant]
  12. ATENOLOL [Concomitant]
  13. PROTONIX [Concomitant]
  14. TRIAMTERENE [Concomitant]
  15. DYAZIDE [Concomitant]
  16. PROPOXYPHENE HYDROCHLORIDE [Concomitant]
  17. ACIPHEX [Concomitant]
  18. NYSTATIN [Concomitant]
  19. NITROFURANTOIN [Concomitant]
  20. CLOBETASOL PROPIONATE [Concomitant]
  21. PHENOBARBITAL [Concomitant]
  22. AMBIEN [Concomitant]
  23. DIOVAN [Concomitant]
  24. SERTRALINE HYDROCHLORIDE [Concomitant]
  25. ZOLOFT [Concomitant]
  26. CIPROFLOXACIN [Concomitant]
  27. METROGEL [Concomitant]
  28. BELLADONA [Concomitant]
  29. OMEPRAZOLE [Concomitant]
  30. CLINDAGEL [Concomitant]
  31. EPIPEN [Concomitant]

REACTIONS (3)
  - ECONOMIC PROBLEM [None]
  - EMOTIONAL DISORDER [None]
  - PAIN [None]
